FAERS Safety Report 7456295-3 (Version None)
Quarter: 2011Q2

REPORT INFORMATION
  Report Type: 
  Country: None (occurrence: None)
  Receive Date: 20110426
  Receipt Date: 20110411
  Transmission Date: 20111010
  Serious: Yes (Hospitalization)
  Sender: FDA-Public Use
  Company Number: 2011-00431

PATIENT
  Age: 78 Year
  Sex: Male
  Weight: 109.7705 kg

DRUGS (6)
  1. METOPROLOL TARTRATE [Concomitant]
  2. FUROSEMIDE (LASIX) (UNKNOWN) [Concomitant]
  3. STEROIDS (UNKNOWN) [Concomitant]
  4. VALSARTAN (DIOVAN) (UNKNOWN) [Concomitant]
  5. PYRIDOSTIGMINE (UNKNOWN) [Concomitant]
  6. SIMVASTATIN [Suspect]
     Indication: HYPERCHOLESTEROLAEMIA
     Dosage: 20 MG (20 MG, 1 IN 1 D), PER ORAL
     Route: 048
     Dates: start: 20110115

REACTIONS (4)
  - GAIT DISTURBANCE [None]
  - SKIN EXFOLIATION [None]
  - DYSPNOEA [None]
  - EYE SWELLING [None]
